FAERS Safety Report 20614212 (Version 1)
Quarter: 2022Q1

REPORT INFORMATION
  Report Type: Spontaneous
  Country: None (occurrence: US)
  Receive Date: 20220320
  Receipt Date: 20220320
  Transmission Date: 20220423
  Serious: Yes (Death, Life-Threatening, Hospitalization, Disabling, Congenital Anomaly, Other)
  Sender: FDA-Public Use
  Company Number: US-001-TEST-SPHR-CDER-DELETE-2126931

PATIENT
  Age: 12 Year
  Sex: Female
  Weight: 70.455 kg

DRUGS (2)
  1. LYRICA [Suspect]
     Active Substance: PREGABALIN
     Indication: Diabetic nephropathy
     Route: 048
     Dates: start: 20210102, end: 20210131
  2. BAYER ASPIRIN [Concomitant]
     Active Substance: ASPIRIN
     Route: 048
     Dates: start: 20210122, end: 20210129

REACTIONS (1)
  - Diabetic nephropathy [Fatal]

NARRATIVE: CASE EVENT DATE: 20210112
